FAERS Safety Report 4380756-7 (Version None)
Quarter: 2004Q2

REPORT INFORMATION
  Report Type: 
  Country: None (occurrence: None)
  Receive Date: 20040614
  Receipt Date: 20040601
  Transmission Date: 20050107
  Serious: Yes (Hospitalization)
  Sender: FDA-Public Use
  Company Number: HQWYE024716JUL03

PATIENT
  Age: 47 Year
  Sex: Female

DRUGS (4)
  1. PREMARIN [Suspect]
     Indication: OESTROGEN REPLACEMENT THERAPY
     Dosage: 0.125 MG DAILY, ORAL
     Route: 048
     Dates: start: 20000101
  2. DARVOCET-N (DEXTROPROPOXYPHENE/PARACETAMOL) [Concomitant]
  3. EXCEDRIN (ACETYLSALICYLIC ACID/CAFFEINE/PARACETAMOL/SALICYLAM IDE) [Concomitant]
  4. IBUPROFEN [Concomitant]

REACTIONS (2)
  - BREAST CANCER METASTATIC [None]
  - PULMONARY EMBOLISM [None]
